FAERS Safety Report 11115378 (Version 1)
Quarter: 2015Q2

REPORT INFORMATION
  Report Type: Spontaneous
  Country: JP (occurrence: JP)
  Receive Date: 20150515
  Receipt Date: 20150515
  Transmission Date: 20150821
  Serious: Yes (Hospitalization, Other)
  Sender: FDA-Public Use
  Company Number: JP-PERRIGO-15JP004682

PATIENT
  Age: 3 Year
  Sex: Female

DRUGS (1)
  1. ACETAMINOPHEN 120MG 579 [Suspect]
     Active Substance: ACETAMINOPHEN
     Indication: PYREXIA
     Dosage: 7.7 MG/KG/DOSE, 2 TOTAL DOSES OVER 8 HOURS
     Route: 054

REACTIONS (4)
  - Acute kidney injury [Recovering/Resolving]
  - Hypersensitivity [Unknown]
  - Chronic kidney disease [Not Recovered/Not Resolved]
  - Tubulointerstitial nephritis [Recovering/Resolving]
